FAERS Safety Report 23176535 (Version 2)
Quarter: 2024Q1

REPORT INFORMATION
  Report Type: Spontaneous
  Country: US (occurrence: US)
  Receive Date: 20231113
  Receipt Date: 20240126
  Transmission Date: 20240409
  Serious: Yes (Disabling, Other)
  Sender: FDA-Public Use
  Company Number: US-BAYER-2023A157315

PATIENT
  Age: 30 Year
  Sex: Female
  Weight: 5 kg

DRUGS (2)
  1. CIPROFLOXACIN [Suspect]
     Active Substance: CIPROFLOXACIN
     Indication: Nail infection
     Dosage: UNK, BID
     Route: 048
     Dates: start: 20230123, end: 20230128
  2. ZOLOFT [Concomitant]
     Active Substance: SERTRALINE HYDROCHLORIDE
     Indication: Perinatal depression
     Dosage: 25 MG
     Route: 048
     Dates: start: 20221212, end: 20230128

REACTIONS (5)
  - Tendon rupture [Recovered/Resolved]
  - Walking disability [Not Recovered/Not Resolved]
  - Tendon pain [None]
  - Dysstasia [Not Recovered/Not Resolved]
  - Loss of personal independence in daily activities [Not Recovered/Not Resolved]

NARRATIVE: CASE EVENT DATE: 20230126
